FAERS Safety Report 10020820 (Version 2)
Quarter: 2014Q1

REPORT INFORMATION
  Report Type: Spontaneous
  Country: AR (occurrence: AR)
  Receive Date: 20140319
  Receipt Date: 20140323
  Transmission Date: 20141002
  Serious: Yes (Other)
  Sender: FDA-Public Use
  Company Number: AR-AMGEN-ARGSP2014019197

PATIENT
  Age: 52 Year
  Sex: Female

DRUGS (8)
  1. ENBREL [Suspect]
     Indication: RHEUMATOID ARTHRITIS
     Dosage: 50 MG, WEEKLY
     Route: 065
     Dates: start: 201306, end: 201312
  2. METHOTREXATE SODIUM [Suspect]
     Indication: RHEUMATOID ARTHRITIS
     Dosage: 20 MG, WEEKLY
     Route: 065
     Dates: start: 2011
  3. MEPREDNISONE [Concomitant]
     Dosage: 20 MG, 1X/DAY
  4. PREGABALIN [Concomitant]
     Dosage: 150 MG, 1X/DAY
  5. FOLIC ACID [Concomitant]
     Dosage: UNK, QWK
  6. NAPROXEN [Concomitant]
     Dosage: 500 MG, 1X/DAY
  7. ACETAMINOPHEN [Concomitant]
     Dosage: 1000 MG, 1X/DAY
  8. CLONAZEPAM [Concomitant]
     Dosage: UNK

REACTIONS (8)
  - Fall [Recovered/Resolved]
  - Nerve injury [Recovered/Resolved]
  - Decreased immune responsiveness [Recovered/Resolved]
  - Fibromyalgia [Not Recovered/Not Resolved]
  - Pain [Not Recovered/Not Resolved]
  - Molluscum contagiosum [Recovered/Resolved]
  - Fungal infection [Recovered/Resolved]
  - Drug ineffective [Unknown]
